FAERS Safety Report 19395337 (Version 1)
Quarter: 2021Q2

REPORT INFORMATION
  Report Type: Spontaneous
  Country: US (occurrence: US)
  Receive Date: 20210609
  Receipt Date: 20210609
  Transmission Date: 20210717
  Serious: No
  Sender: FDA-Public Use
  Company Number: US-BIOGEN-2021BI01018464

PATIENT
  Sex: Female

DRUGS (1)
  1. TECFIDERA [Suspect]
     Active Substance: DIMETHYL FUMARATE
     Indication: MULTIPLE SCLEROSIS
     Route: 048
     Dates: start: 20150323

REACTIONS (6)
  - Flushing [Unknown]
  - Diarrhoea [Unknown]
  - Feeling abnormal [Unknown]
  - Muscular weakness [Unknown]
  - Balance disorder [Unknown]
  - Gastrointestinal disorder [Unknown]
